FAERS Safety Report 5479719-X (Version None)
Quarter: 2007Q4

REPORT INFORMATION
  Report Type: 
  Country: None (occurrence: None)
  Receive Date: 20071008
  Receipt Date: 20070928
  Transmission Date: 20080405
  Serious: Yes (Other)
  Sender: FDA-Public Use
  Company Number: GB-JNJFOC-20070803907

PATIENT
  Age: 65 Year
  Sex: Female
  Weight: 73.47 kg

DRUGS (2)
  1. REMINYL [Suspect]
     Indication: DRUG USE FOR UNKNOWN INDICATION
     Route: 048
  2. REMINYL [Concomitant]

REACTIONS (2)
  - DRUG PRESCRIBING ERROR [None]
  - HYPERHIDROSIS [None]
